FAERS Safety Report 10932968 (Version 3)
Quarter: 2015Q2

REPORT INFORMATION
  Report Type: Spontaneous
  Country: CA (occurrence: CA)
  Receive Date: 20150320
  Receipt Date: 20150415
  Transmission Date: 20150821
  Serious: Yes (Other)
  Sender: FDA-Public Use
  Company Number: CA-BEH-2015049637

PATIENT
  Age: 69 Year
  Sex: Male
  Weight: 75 kg

DRUGS (20)
  1. PRAVASTATIN [Concomitant]
     Active Substance: PRAVASTATIN\PRAVASTATIN SODIUM
     Route: 048
  2. ALLOPURINOL. [Concomitant]
     Active Substance: ALLOPURINOL
     Route: 048
  3. TAMSULOSIN [Concomitant]
     Active Substance: TAMSULOSIN
     Route: 048
  4. LISINOPRIL. [Concomitant]
     Active Substance: LISINOPRIL
     Route: 048
  5. PROCHLORAZIN [Concomitant]
     Dosage: Q 4-6 HOURS
     Route: 048
  6. HYCODAN [Concomitant]
     Active Substance: HOMATROPINE METHYLBROMIDE\HYDROCODONE BITARTRATE
     Route: 048
  7. DUOTRAV [Concomitant]
     Active Substance: TIMOLOL\TRAVOPROST
     Dosage: 1 DROP/EYE OD
  8. PRIVIGEN [Suspect]
     Active Substance: HUMAN IMMUNOGLOBULIN G
     Indication: WALDENSTROM^S MACROGLOBULINAEMIA
     Dosage: 50 ML 4/4, FLOW RATE: 22 ML/HR
     Route: 042
     Dates: start: 20150224, end: 20150224
  9. LASIX [Concomitant]
     Active Substance: FUROSEMIDE
     Route: 048
  10. PRIVIGEN [Suspect]
     Active Substance: HUMAN IMMUNOGLOBULIN G
     Dosage: PARTIALLY ADMINISTERED, 1/4, FLOW RATE: 150 ML/HR
     Route: 042
     Dates: start: 20150224, end: 20150224
  11. PRIVIGEN [Suspect]
     Active Substance: HUMAN IMMUNOGLOBULIN G
     Dates: start: 20110227
  12. HYCODAN [Concomitant]
     Active Substance: HOMATROPINE METHYLBROMIDE\HYDROCODONE BITARTRATE
     Route: 048
  13. PRIVIGEN [Suspect]
     Active Substance: HUMAN IMMUNOGLOBULIN G
     Dosage: FLOW RATE: 43 ML/HOUR
     Route: 042
     Dates: start: 20150224, end: 20150224
  14. PRIVIGEN [Suspect]
     Active Substance: HUMAN IMMUNOGLOBULIN G
     Dates: start: 20110227
  15. DUOTRAV [Concomitant]
     Active Substance: TIMOLOL\TRAVOPROST
     Dosage: 1 DROP/EYE OD
  16. PLAVIX [Concomitant]
     Active Substance: CLOPIDOGREL BISULFATE
     Route: 048
  17. ATIVAN [Concomitant]
     Active Substance: LORAZEPAM
     Dosage: HS
     Route: 048
  18. PRIVIGEN [Suspect]
     Active Substance: HUMAN IMMUNOGLOBULIN G
     Dates: start: 20110227
  19. ATIVAN [Concomitant]
     Active Substance: LORAZEPAM
     Dosage: AM
     Route: 048
  20. VENTOLIN [Concomitant]
     Active Substance: ALBUTEROL SULFATE
     Dosage: 1 INH QID
     Route: 055

REACTIONS (12)
  - Chills [Recovered/Resolved]
  - Headache [Recovered/Resolved]
  - Oxygen saturation decreased [Recovered/Resolved]
  - Tachycardia [Recovered/Resolved]
  - Anti A antibody [Recovered/Resolved]
  - Blood pressure increased [Recovered/Resolved]
  - Pyrexia [Recovered/Resolved]
  - Dyspnoea [Recovered/Resolved]
  - Hypertension [Recovered/Resolved]
  - Hypervolaemia [Recovered/Resolved]
  - Fluid overload [Recovered/Resolved]
  - Tachypnoea [Recovered/Resolved]

NARRATIVE: CASE EVENT DATE: 20150224
